FAERS Safety Report 12789923 (Version 1)
Quarter: 2016Q3

REPORT INFORMATION
  Report Type: Spontaneous
  Country: US (occurrence: US)
  Receive Date: 20160928
  Receipt Date: 20160928
  Transmission Date: 20161109
  Serious: No
  Sender: FDA-Public Use
  Company Number: US-KOWA-16US000572

PATIENT
  Sex: Male

DRUGS (4)
  1. LIVALO [Suspect]
     Active Substance: PITAVASTATIN CALCIUM
     Dosage: UNK
  2. LIVALO [Suspect]
     Active Substance: PITAVASTATIN CALCIUM
     Indication: BLOOD CHOLESTEROL INCREASED
     Dosage: 1 MG, QD
     Dates: start: 2015, end: 2015
  3. TRIAMTERENE. [Concomitant]
     Active Substance: TRIAMTERENE
     Indication: HYPERTENSION
     Dosage: UNK
  4. FISH OIL [Concomitant]
     Active Substance: FISH OIL
     Indication: PRODUCT USED FOR UNKNOWN INDICATION
     Dosage: UNK

REACTIONS (2)
  - Glycosylated haemoglobin increased [Recovered/Resolved]
  - Blood glucose increased [Recovered/Resolved]
